FAERS Safety Report 8251956-0 (Version None)
Quarter: 2012Q2

REPORT INFORMATION
  Report Type: 
  Country: None (occurrence: None)
  Receive Date: 20120402
  Receipt Date: 20120323
  Transmission Date: 20120825
  Serious: Yes (Other)
  Sender: FDA-Public Use
  Company Number: PHHY2012JP026869

PATIENT
  Age: 17 Year
  Sex: Female

DRUGS (10)
  1. CYTARABINE [Suspect]
     Dosage: 2 G/M2/DAY ON DAYS 1-3
  2. DEXAMETHASONE [Suspect]
     Dosage: 40 MG/BODY/DAY ON DAYS 1-3
  3. TACROLIMUS [Concomitant]
  4. METHOTREXATE [Suspect]
  5. PREDNISOLONE [Concomitant]
  6. ETOPOSIDE [Suspect]
     Dosage: 100 MG/M2/DAY ON DAYS 1-3
  7. VINCRISTINE [Suspect]
     Dosage: 1.3 MG/M2/DAY
  8. LEUCOVORIN CALCIUM [Suspect]
  9. MERCAPTOPURINE [Suspect]
     Dosage: 25 MG/M2/DAY ON DAY 1-21
  10. ITRACONAZOLE [Concomitant]

REACTIONS (4)
  - SUBILEUS [None]
  - RASH [None]
  - DYSKINESIA [None]
  - LEUKOENCEPHALOPATHY [None]
